FAERS Safety Report 5012395-9 (Version None)
Quarter: 2006Q2

REPORT INFORMATION
  Report Type: 
  Country: None (occurrence: None)
  Receive Date: 20060414
  Receipt Date: 20060117
  Transmission Date: 20061013
  Serious: No
  Sender: FDA-Public Use
  Company Number: 2006SP000293

PATIENT
  Age: 31 Year
  Sex: Male
  Weight: 78.0187 kg

DRUGS (3)
  1. LUNESTA [Suspect]
     Indication: INSOMNIA
     Dosage: 3 MG;HS;ORAL
     Route: 048
     Dates: start: 20060101, end: 20060115
  2. LUNESTA [Suspect]
     Indication: MUSCLE SPASMS
     Dosage: 3 MG;HS;ORAL
     Route: 048
     Dates: start: 20060101, end: 20060115
  3. CLARITIN [Concomitant]

REACTIONS (1)
  - INSOMNIA [None]
